FAERS Safety Report 20716948 (Version 1)
Quarter: 2022Q2

REPORT INFORMATION
  Report Type: Spontaneous
  Country: US (occurrence: US)
  Receive Date: 20220416
  Receipt Date: 20220416
  Transmission Date: 20220720
  Serious: Yes (Other)
  Sender: FDA-Public Use
  Company Number: US-FRESENIUS KABI-FK202204328

PATIENT
  Sex: Male

DRUGS (6)
  1. SMOFLIPID [Suspect]
     Active Substance: FISH OIL\MEDIUM-CHAIN TRIGLYCERIDES\OLIVE OIL\SOYBEAN OIL
     Indication: Weight gain poor
     Route: 065
  2. SMOFLIPID [Suspect]
     Active Substance: FISH OIL\MEDIUM-CHAIN TRIGLYCERIDES\OLIVE OIL\SOYBEAN OIL
     Indication: Fatty acid deficiency
     Route: 065
     Dates: start: 202103, end: 202112
  3. SMOFLIPID [Suspect]
     Active Substance: FISH OIL\MEDIUM-CHAIN TRIGLYCERIDES\OLIVE OIL\SOYBEAN OIL
     Route: 065
     Dates: start: 202112
  4. OMEGAVEN [Suspect]
     Active Substance: FISH OIL
     Indication: Parenteral nutrition associated liver disease
     Route: 065
     Dates: start: 2019
  5. OMEGAVEN [Suspect]
     Active Substance: FISH OIL
     Indication: Weight gain poor
     Dosage: INCREASED DOSE
     Route: 065
  6. OMEGAVEN [Suspect]
     Active Substance: FISH OIL
     Indication: Fatty acid deficiency
     Route: 065
     Dates: start: 202103, end: 202112

REACTIONS (4)
  - Parenteral nutrition associated liver disease [Unknown]
  - Fatty acid deficiency [Recovered/Resolved]
  - Off label use [Unknown]
  - Weight gain poor [Recovered/Resolved]
